FAERS Safety Report 8437736-1 (Version None)
Quarter: 2012Q2

REPORT INFORMATION
  Report Type: 
  Country: None (occurrence: None)
  Receive Date: 20120614
  Receipt Date: 20120322
  Transmission Date: 20120825
  Serious: No
  Sender: FDA-Public Use
  Company Number: US-GLAXOSMITHKLINE-A0970800A

PATIENT
  Age: 76 Year
  Sex: Female

DRUGS (1)
  1. NICORETTE (MINT) [Suspect]
     Indication: EX-TOBACCO USER
     Dates: start: 20120321, end: 20120321

REACTIONS (3)
  - NAUSEA [None]
  - HEADACHE [None]
  - NONSPECIFIC REACTION [None]
